FAERS Safety Report 25034988 (Version 3)
Quarter: 2025Q2

REPORT INFORMATION
  Report Type: Spontaneous
  Country: JP (occurrence: JP)
  Receive Date: 20250304
  Receipt Date: 20250523
  Transmission Date: 20250717
  Serious: Yes (Hospitalization, Other)
  Sender: Haleon PLC
  Company Number: JP-002147023-NVSJ2025JP001351

PATIENT
  Age: 36 Year
  Sex: Male
  Weight: 63 kg

DRUGS (14)
  1. VOLTAREN [Suspect]
     Active Substance: DICLOFENAC SODIUM
     Indication: Pain
     Route: 048
     Dates: start: 20211026, end: 202201
  2. LOXOPROFEN [Concomitant]
     Active Substance: LOXOPROFEN
     Indication: Neck pain
     Dosage: 1 DOSAGE FORM, BID
     Route: 003
     Dates: start: 20211007
  3. LOXOPROFEN [Concomitant]
     Active Substance: LOXOPROFEN
     Indication: Headache
  4. FELBINAC [Concomitant]
     Active Substance: FELBINAC
     Indication: Pain
     Dates: start: 20220105
  5. KETOPROFEN [Concomitant]
     Active Substance: KETOPROFEN
     Indication: Headache
     Dosage: 1 DOSAGE FORM, BID
     Route: 003
     Dates: start: 20211024
  6. KETOPROFEN [Concomitant]
     Active Substance: KETOPROFEN
     Indication: Neck pain
  7. AUGMENTIN [Concomitant]
     Active Substance: AMOXICILLIN\CLAVULANATE POTASSIUM
     Indication: Infection prophylaxis
     Dosage: 1 DOSAGE FORM, QID
     Route: 048
     Dates: start: 20211006
  8. AMOXICILLIN [Concomitant]
     Active Substance: AMOXICILLIN
     Indication: Infection prophylaxis
     Dosage: 250 MG, QID
     Route: 048
     Dates: start: 20211006
  9. REBAMIPIDE [Suspect]
     Active Substance: REBAMIPIDE
     Indication: Pain
     Route: 048
     Dates: start: 20211006
  10. REBAMIPIDE [Suspect]
     Active Substance: REBAMIPIDE
     Indication: Gastric ulcer perforation
  11. VOLTAREN [Suspect]
     Active Substance: DICLOFENAC SODIUM
     Indication: Product used for unknown indication
     Route: 050
     Dates: start: 20211008, end: 20211008
  12. CALONAL [Concomitant]
     Active Substance: ACETAMINOPHEN
     Indication: Pain
     Dosage: 1000 MG, QID
     Route: 048
     Dates: start: 20211015
  13. LOXOPROFEN [Suspect]
     Active Substance: LOXOPROFEN
     Indication: Pain
     Route: 048
     Dates: start: 20211006
  14. Zenol [Concomitant]
     Indication: Pain
     Route: 003
     Dates: start: 20211220

REACTIONS (13)
  - Gastric ulcer perforation [Recovering/Resolving]
  - Peritonitis [Unknown]
  - Hypoaesthesia [Recovering/Resolving]
  - Irritable bowel syndrome [Recovering/Resolving]
  - Joint swelling [Recovering/Resolving]
  - Pain in extremity [Recovering/Resolving]
  - Subileus [Recovering/Resolving]
  - Complex regional pain syndrome [Recovering/Resolving]
  - Arthralgia [Recovering/Resolving]
  - Constipation [Unknown]
  - Abdominal pain upper [Unknown]
  - Pyrexia [Recovered/Resolved]
  - Neuralgia [Recovering/Resolving]

NARRATIVE: CASE EVENT DATE: 20211108
